FAERS Safety Report 4963927-8 (Version None)
Quarter: 2006Q2

REPORT INFORMATION
  Report Type: 
  Country: None (occurrence: None)
  Receive Date: 20060405
  Receipt Date: 20060227
  Transmission Date: 20061013
  Serious: Yes (Death)
  Sender: FDA-Public Use
  Company Number: US-MERCK-0602USA05929

PATIENT
  Age: 67 Year
  Sex: Male
  Weight: 84 kg

DRUGS (9)
  1. VIOXX [Suspect]
     Indication: ARTHRALGIA
     Route: 048
     Dates: start: 20000801, end: 20040301
  2. VIOXX [Suspect]
     Route: 048
     Dates: start: 20000801, end: 20040301
  3. ASPIRIN [Concomitant]
     Route: 065
  4. AVANDIA [Concomitant]
     Route: 065
  5. PAXIL [Concomitant]
     Route: 065
  6. ZOCOR [Concomitant]
     Route: 065
  7. BAYCOL [Concomitant]
     Route: 065
  8. VIOXX [Suspect]
     Route: 048
     Dates: start: 20000801, end: 20040301
  9. VIOXX [Suspect]
     Route: 048
     Dates: start: 20000801, end: 20040301

REACTIONS (6)
  - CARDIAC ARREST [None]
  - DIABETES MELLITUS NON-INSULIN-DEPENDENT [None]
  - HYPERLIPIDAEMIA [None]
  - MYOCARDIAL INFARCTION [None]
  - OVERDOSE [None]
  - RENAL FAILURE [None]
